FAERS Safety Report 7402454-5 (Version None)
Quarter: 2011Q1

REPORT INFORMATION
  Report Type: 
  Country: None (occurrence: None)
  Receive Date: 20110331
  Receipt Date: 20110318
  Transmission Date: 20110831
  Serious: Yes (Life-Threatening)
  Sender: FDA-Public Use
  Company Number: 029024

PATIENT
  Age: 58 Year
  Sex: Male

DRUGS (12)
  1. EXCEGRAN [Concomitant]
  2. GASTER /00706001/ [Concomitant]
  3. TOPIRAMATE [Concomitant]
  4. KOLANTYL /00130401/ [Concomitant]
  5. ASPIRIN [Concomitant]
  6. LASIX [Concomitant]
  7. WARFARIN [Concomitant]
  8. MYSLEE [Concomitant]
  9. CEROCRAL [Concomitant]
  10. KEPPRA [Suspect]
     Indication: EPILEPSY
     Dosage: (500 MG BID ORAL)
     Route: 048
     Dates: start: 20110118, end: 20110226
  11. CARBAMAZEPINE [Concomitant]
  12. RISPERDAL [Concomitant]

REACTIONS (7)
  - SCHIZOPHRENIA [None]
  - SOMNOLENCE [None]
  - SUICIDE ATTEMPT [None]
  - FEELING ABNORMAL [None]
  - HALLUCINATION, AUDITORY [None]
  - DEPRESSION [None]
  - PERSECUTORY DELUSION [None]
